FAERS Safety Report 17045502 (Version 1)
Quarter: 2019Q4

REPORT INFORMATION
  Report Type: Spontaneous
  Country: HU (occurrence: HU)
  Receive Date: 20191118
  Receipt Date: 20191118
  Transmission Date: 20200122
  Serious: Yes (Other)
  Sender: FDA-Public Use
  Company Number: NVSC2019HU038660

PATIENT
  Age: 57 Year
  Sex: Male

DRUGS (8)
  1. PAZOPANIB [Suspect]
     Active Substance: PAZOPANIB
     Dosage: 4 CYCLES
     Route: 065
     Dates: start: 20140623
  2. PAZOPANIB [Suspect]
     Active Substance: PAZOPANIB
     Dosage: 28 TO 34
     Route: 065
     Dates: start: 20161218, end: 20170620
  3. PAZOPANIB [Suspect]
     Active Substance: PAZOPANIB
     Indication: PRODUCT USED FOR UNKNOWN INDICATION
     Dosage: UNK
     Route: 065
     Dates: start: 20140319
  4. PAZOPANIB [Suspect]
     Active Substance: PAZOPANIB
     Dosage: 16 CYCLES
     Route: 065
     Dates: start: 20150624
  5. PAZOPANIB [Suspect]
     Active Substance: PAZOPANIB
     Dosage: 19 CYCLE
     Route: 065
     Dates: start: 20150923
  6. PAZOPANIB [Suspect]
     Active Substance: PAZOPANIB
     Dosage: 20 CYCLE
     Route: 065
     Dates: start: 20151021
  7. PAZOPANIB [Suspect]
     Active Substance: PAZOPANIB
     Dosage: 18 CYCLE
     Route: 065
     Dates: start: 20150825
  8. PAZOPANIB [Suspect]
     Active Substance: PAZOPANIB
     Dosage: 24 TO 27  CYCLES
     Route: 065
     Dates: start: 20160721, end: 20161112

REACTIONS (6)
  - Eyelash discolouration [Unknown]
  - Fatigue [Unknown]
  - Squamous cell carcinoma of the tongue [Unknown]
  - Hair colour changes [Unknown]
  - Diarrhoea [Unknown]
  - Hepatic mass [Unknown]

NARRATIVE: CASE EVENT DATE: 201404
